FAERS Safety Report 4603253-X (Version None)
Quarter: 2005Q1

REPORT INFORMATION
  Report Type: 
  Country: None (occurrence: None)
  Receive Date: 20050308
  Receipt Date: 20050209
  Transmission Date: 20050727
  Serious: Yes (Hospitalization, Other)
  Sender: FDA-Public Use
  Company Number: 200510386GDS

PATIENT
  Age: 77 Year
  Sex: Male

DRUGS (14)
  1. NIFEDIPINE [Suspect]
     Indication: HYPERTENSION
     Dosage: 60 MG, TOTAL DAILY, ORAL
     Route: 048
  2. AMLODIPINE [Suspect]
     Indication: HYPERTENSION
     Dosage: 10 MG, TOTAL DAILY,
  3. LISINOPRIL [Suspect]
     Indication: HYPERTENSION
     Dosage: 20 MG, TOTAL DAILY,
  4. HYDROCHLOROTHIAZIDE [Suspect]
     Indication: HYPERTENSION
     Dosage: 12.5 MG, TOTAL DAILY,
  5. DOXAZOSIN [Suspect]
     Indication: HYPERTENSION
     Dosage: 8 MG, TOTAL DAILY,
  6. QUINAPRIL HCL [Suspect]
     Indication: HYPERTENSION
     Dosage: 20 MG, TOTAL DAILY,
  7. CLARITHROMYCIN [Suspect]
     Indication: COUGH
     Dosage: BID,
     Dates: start: 20031201
  8. CLARITHROMYCIN [Suspect]
     Indication: DYSPNOEA
     Dosage: BID,
     Dates: start: 20031201
  9. CLARITHROMYCIN [Suspect]
     Indication: PRODUCTIVE COUGH
     Dosage: BID,
     Dates: start: 20031201
  10. CAPTOPRIL [Concomitant]
  11. METFORMIN HCL [Concomitant]
  12. GLIBENCLAMIDE [Concomitant]
  13. ALBUTEROL [Concomitant]
  14. BUDESONIDE [Concomitant]

REACTIONS (22)
  - ASTHENIA [None]
  - BRADYCARDIA [None]
  - CEREBROVASCULAR ACCIDENT [None]
  - CONDITION AGGRAVATED [None]
  - DEPRESSED LEVEL OF CONSCIOUSNESS [None]
  - DRUG INTERACTION [None]
  - DYSPNOEA [None]
  - ELECTROCARDIOGRAM ABNORMAL [None]
  - HAEMODIALYSIS [None]
  - HYPERGLYCAEMIA [None]
  - HYPERKALAEMIA [None]
  - HYPERTENSION [None]
  - HYPOCALCAEMIA [None]
  - HYPONATRAEMIA [None]
  - METABOLIC ACIDOSIS [None]
  - PERIPHERAL COLDNESS [None]
  - PRODUCTIVE COUGH [None]
  - PULSE ABSENT [None]
  - RENAL IMPAIRMENT [None]
  - RHYTHM IDIOVENTRICULAR [None]
  - SHOCK [None]
  - VASCULAR RESISTANCE SYSTEMIC DECREASED [None]
